FAERS Safety Report 9693830 (Version 1)
Quarter: 2013Q4

REPORT INFORMATION
  Report Type: Spontaneous
  Country: US (occurrence: US)
  Receive Date: 20131118
  Receipt Date: 20131118
  Transmission Date: 20140711
  Serious: No
  Sender: FDA-Public Use
  Company Number: US-B.I. PHARMACEUTICALS,INC./RIDGEFIELD-2013-BI-36589BP

PATIENT
  Age: 63 Year
  Sex: Female

DRUGS (1)
  1. COMBIVENT [Suspect]
     Indication: EMPHYSEMA
     Route: 048

REACTIONS (4)
  - Chronic obstructive pulmonary disease [Unknown]
  - Dyspnoea [Unknown]
  - Drug ineffective [Unknown]
  - Product quality issue [Unknown]
